FAERS Safety Report 21094390 (Version 19)
Quarter: 2023Q4

REPORT INFORMATION
  Report Type: Spontaneous
  Country: CA (occurrence: CA)
  Receive Date: 20220718
  Receipt Date: 20231130
  Transmission Date: 20240109
  Serious: Yes (Hospitalization, Other)
  Sender: FDA-Public Use
  Company Number: CA-PFIZER INC-202200581056

PATIENT
  Age: 68 Year
  Sex: Male
  Weight: 72 kg

DRUGS (16)
  1. ZIRABEV [Suspect]
     Active Substance: BEVACIZUMAB-BVZR
     Indication: Angiodysplasia
     Dosage: 5 MG/KG (365MG) Q 2 WEEKS X 6 DOSES THEN MAINTENANCE Q 4 WEEKS X 3
     Route: 042
  2. ZIRABEV [Suspect]
     Active Substance: BEVACIZUMAB-BVZR
     Indication: Hereditary haemorrhagic telangiectasia
     Dosage: 365 MG Q 2 WEEKS X 6 DOSES THEN MAINTENANCE Q 4 WEEKS X 3
     Route: 042
     Dates: start: 20220530
  3. ZIRABEV [Suspect]
     Active Substance: BEVACIZUMAB-BVZR
     Dosage: 365 MG Q 2 WEEKS X 6 DOSES THEN MAINTENANCE Q 4 WEEKS X 3
     Route: 042
     Dates: start: 20220614
  4. ZIRABEV [Suspect]
     Active Substance: BEVACIZUMAB-BVZR
     Dosage: 365 MG Q 2 WEEKS X 6 DOSES THEN MAINTENANCE Q 4 WEEKS X 3
     Route: 042
     Dates: start: 20220628, end: 20220628
  5. ZIRABEV [Suspect]
     Active Substance: BEVACIZUMAB-BVZR
     Dosage: 5 MG/KG (365MG), Q 4 WEEKS
     Route: 042
  6. ZIRABEV [Suspect]
     Active Substance: BEVACIZUMAB-BVZR
     Dosage: 365 MG
     Route: 042
     Dates: start: 20230316
  7. ZIRABEV [Suspect]
     Active Substance: BEVACIZUMAB-BVZR
     Dosage: 365 MG
     Route: 042
     Dates: start: 20230413
  8. ZIRABEV [Suspect]
     Active Substance: BEVACIZUMAB-BVZR
     Dosage: 365 MG
     Route: 042
     Dates: start: 20230511
  9. ZIRABEV [Suspect]
     Active Substance: BEVACIZUMAB-BVZR
     Dosage: 365 MG
     Route: 042
     Dates: start: 20230608
  10. ZIRABEV [Suspect]
     Active Substance: BEVACIZUMAB-BVZR
     Dosage: 1200 MG
     Route: 042
     Dates: start: 20230803
  11. ZIRABEV [Suspect]
     Active Substance: BEVACIZUMAB-BVZR
     Dosage: 335 MG EVERY 4 WEEKS
     Route: 042
  12. ZIRABEV [Suspect]
     Active Substance: BEVACIZUMAB-BVZR
     Dosage: 365 MG, EVERY 4 WEEKS
     Route: 042
     Dates: start: 20230831
  13. ZIRABEV [Suspect]
     Active Substance: BEVACIZUMAB-BVZR
     Dosage: 335 MG
     Route: 042
     Dates: start: 20230928
  14. ZIRABEV [Suspect]
     Active Substance: BEVACIZUMAB-BVZR
     Dosage: 335 MG
     Dates: start: 20231026
  15. ZIRABEV [Suspect]
     Active Substance: BEVACIZUMAB-BVZR
     Dosage: 335 MG
     Dates: start: 20231123
  16. TRANEXAMIC ACID [Concomitant]
     Active Substance: TRANEXAMIC ACID
     Indication: Epistaxis
     Dosage: 1000 MG, 4X/DAY
     Dates: start: 202109

REACTIONS (21)
  - Appendicitis [Unknown]
  - Abscess [Unknown]
  - Epilepsy [Unknown]
  - Haemorrhage [Not Recovered/Not Resolved]
  - Arteriovenous malformation [Unknown]
  - Gastrointestinal haemorrhage [Unknown]
  - Epistaxis [Not Recovered/Not Resolved]
  - Disease recurrence [Not Recovered/Not Resolved]
  - Vasodilatation [Not Recovered/Not Resolved]
  - Off label use [Unknown]
  - Weight decreased [Unknown]
  - Pain [Unknown]
  - Fatigue [Unknown]
  - Depression [Unknown]
  - Anxiety [Unknown]
  - Somnolence [Unknown]
  - Decreased appetite [Unknown]
  - Malaise [Unknown]
  - Dyspnoea [Unknown]
  - Nausea [Unknown]
  - Blood pressure decreased [Recovering/Resolving]

NARRATIVE: CASE EVENT DATE: 20220101
